FAERS Safety Report 13881898 (Version 1)
Quarter: 2017Q3

REPORT INFORMATION
  Report Type: Spontaneous
  Country: BR (occurrence: BR)
  Receive Date: 20170818
  Receipt Date: 20170818
  Transmission Date: 20171127
  Serious: Yes (Other)
  Sender: FDA-Public Use
  Company Number: BR-AMGEN-BRASP2017123959

PATIENT
  Age: 55 Year
  Sex: Female

DRUGS (4)
  1. XGEVA [Suspect]
     Active Substance: DENOSUMAB
     Indication: METASTASES TO BONE
     Dosage: UNK
     Route: 065
  2. AVASTIN [Concomitant]
     Active Substance: BEVACIZUMAB
     Indication: LUNG NEOPLASM MALIGNANT
  3. CARBOPLATIN. [Concomitant]
     Active Substance: CARBOPLATIN
     Indication: LUNG NEOPLASM MALIGNANT
  4. TAXOL [Concomitant]
     Active Substance: PACLITAXEL
     Indication: LUNG NEOPLASM MALIGNANT

REACTIONS (1)
  - Osteonecrosis of jaw [Unknown]
